FAERS Safety Report 17908825 (Version 7)
Quarter: 2020Q4

REPORT INFORMATION
  Report Type: Report from Study
  Country: AE (occurrence: AE)
  Receive Date: 20200617
  Receipt Date: 20201130
  Transmission Date: 20210113
  Serious: Yes (Other)
  Sender: FDA-Public Use
  Company Number: NVSC2020AE153741

PATIENT
  Age: 36 Year
  Sex: Female

DRUGS (6)
  1. PIQRAY [Suspect]
     Active Substance: ALPELISIB
     Dosage: 300 MG, QD
     Route: 048
     Dates: end: 202009
  2. FULVESTRANT. [Concomitant]
     Active Substance: FULVESTRANT
     Indication: RADIOTHERAPY
     Dosage: UNK
     Route: 065
  3. GOSERELIN [Concomitant]
     Active Substance: GOSERELIN
     Indication: RADIOTHERAPY
     Dosage: UNK
     Route: 065
  4. PIQRAY [Suspect]
     Active Substance: ALPELISIB
     Dosage: 250 MG, QD
     Route: 048
     Dates: start: 20200615
  5. PIQRAY [Suspect]
     Active Substance: ALPELISIB
     Indication: BREAST CANCER METASTATIC
     Dosage: 250 MG, QD
     Route: 048
     Dates: start: 20200529
  6. ALPELISIB [Concomitant]
     Active Substance: ALPELISIB
     Indication: RADIOTHERAPY
     Dosage: UNK
     Route: 065

REACTIONS (26)
  - Allergic oedema [Unknown]
  - Diarrhoea [Unknown]
  - Oropharyngeal oedema [Unknown]
  - Swollen tongue [Unknown]
  - Bone pain [Not Recovered/Not Resolved]
  - Tongue oedema [Unknown]
  - Fixed eruption [Unknown]
  - Mediastinal mass [Not Recovered/Not Resolved]
  - Angioedema [Unknown]
  - Urticaria [Unknown]
  - Papule [Unknown]
  - Eye oedema [Unknown]
  - Metastasis [Unknown]
  - Breast cancer metastatic [Unknown]
  - Hyperglycaemia [Not Recovered/Not Resolved]
  - Blood glucose increased [Unknown]
  - Pruritus [Unknown]
  - Oedema mouth [Unknown]
  - Oropharyngeal swelling [Unknown]
  - Tongue spasm [Unknown]
  - Dermatitis allergic [Recovered/Resolved]
  - Oropharyngeal spasm [Unknown]
  - Mouth swelling [Unknown]
  - Erythema [Unknown]
  - Flushing [Unknown]
  - Malignant neoplasm progression [Unknown]

NARRATIVE: CASE EVENT DATE: 20200531
